FAERS Safety Report 18129539 (Version 1)
Quarter: 2020Q3

REPORT INFORMATION
  Report Type: Spontaneous
  Country: NL (occurrence: NL)
  Receive Date: 20200810
  Receipt Date: 20200810
  Transmission Date: 20201103
  Serious: Yes (Hospitalization, Other)
  Sender: FDA-Public Use
  Company Number: NL-PFIZER INC-2020279317

PATIENT
  Age: 45 Year
  Sex: Female

DRUGS (8)
  1. ETHAMBUTOL [Suspect]
     Active Substance: ETHAMBUTOL HYDROCHLORIDE
     Indication: MYCOBACTERIUM AVIUM COMPLEX INFECTION
     Dosage: 600 MG, DAILY
  2. FOLIC ACID. [Concomitant]
     Active Substance: FOLIC ACID
     Dosage: 5 MG, DAILY
  3. DIDANOSINE. [Concomitant]
     Active Substance: DIDANOSINE
     Dosage: 250 MG, DAILY
  4. RIFABUTIN. [Suspect]
     Active Substance: RIFABUTIN
     Indication: MYCOBACTERIUM AVIUM COMPLEX INFECTION
     Dosage: 600 MG, DAILY
     Dates: start: 1993
  5. RIFABUTIN. [Suspect]
     Active Substance: RIFABUTIN
     Dosage: 300 MG, DAILY
  6. FLUCONAZOLE. [Concomitant]
     Active Substance: FLUCONAZOLE
     Dosage: 50 MG, ALTERNATE DAY
  7. CLARITHROMYCIN. [Suspect]
     Active Substance: CLARITHROMYCIN
     Indication: MYCOBACTERIUM AVIUM COMPLEX INFECTION
     Dosage: 1.5?2G, DAILY
     Dates: start: 1993
  8. PENTAMIDINE [Concomitant]
     Active Substance: PENTAMIDINE
     Dosage: 300 MG, MONTHLY

REACTIONS (6)
  - Rash [Recovered/Resolved]
  - Overdose [Unknown]
  - Jaundice [Recovered/Resolved]
  - Arthritis [Recovered/Resolved]
  - Iridocyclitis [Recovered/Resolved]
  - Pruritus [Recovered/Resolved]

NARRATIVE: CASE EVENT DATE: 1994
